FAERS Safety Report 16597620 (Version 1)
Quarter: 2019Q3

REPORT INFORMATION
  Report Type: Spontaneous
  Country: US (occurrence: US)
  Receive Date: 20190718
  Receipt Date: 20190718
  Transmission Date: 20191004
  Serious: Yes (Hospitalization)
  Sender: FDA-Public Use
  Company Number: None

PATIENT
  Age: 74 Year
  Sex: Female

DRUGS (19)
  1. AZELASTINE. [Concomitant]
     Active Substance: AZELASTINE HYDROCHLORIDE
  2. CLOPIDOGREL [Concomitant]
     Active Substance: CLOPIDOGREL BISULFATE
  3. DICLOFENAC [Concomitant]
     Active Substance: DICLOFENAC
  4. MAVENCLAD [Suspect]
     Active Substance: CLADRIBINE
     Indication: PRODUCT USED FOR UNKNOWN INDICATION
     Dosage: ?          OTHER FREQUENCY:DAYS 1-5;?
     Route: 048
     Dates: start: 20190618
  5. BISOPRL/HCTZ [Concomitant]
  6. LIDOCANE [Concomitant]
     Active Substance: LIDOCAINE
  7. LOSARTAN. [Concomitant]
     Active Substance: LOSARTAN
  8. PANTOPRAZOLE [Concomitant]
     Active Substance: PANTOPRAZOLE
  9. DILT-XR [Concomitant]
     Active Substance: DILTIAZEM
  10. LOPERAMIDE [Concomitant]
     Active Substance: LOPERAMIDE
  11. PRAVASTATIN. [Concomitant]
     Active Substance: PRAVASTATIN
  12. ATORVASTATIN [Concomitant]
     Active Substance: ATORVASTATIN
  13. CLONDINE [Concomitant]
     Active Substance: CLONIDINE
  14. HYDRALAZINE [Concomitant]
     Active Substance: HYDRALAZINE HYDROCHLORIDE
  15. OMEPRAZOLE. [Concomitant]
     Active Substance: OMEPRAZOLE
  16. TRAZODONE [Concomitant]
     Active Substance: TRAZODONE HYDROCHLORIDE
  17. GABAPENTIN. [Concomitant]
     Active Substance: GABAPENTIN
  18. PRAZOSIN. [Concomitant]
     Active Substance: PRAZOSIN
  19. BACLOFEN. [Concomitant]
     Active Substance: BACLOFEN

REACTIONS (3)
  - Fall [None]
  - Abnormal behaviour [None]
  - Amnesia [None]

NARRATIVE: CASE EVENT DATE: 20190715
